FAERS Safety Report 16207169 (Version 4)
Quarter: 2020Q2

REPORT INFORMATION
  Report Type: Report from Study
  Country: None (occurrence: CA)
  Receive Date: 20190417
  Receipt Date: 20200507
  Transmission Date: 20200713
  Serious: Yes (Hospitalization)
  Sender: FDA-Public Use
  Company Number: CA-ABBVIE-19S-028-2745110-00

PATIENT
  Sex: Female
  Weight: 45.4 kg

DRUGS (5)
  1. PRAMIPEXOLE. [Concomitant]
     Active Substance: PRAMIPEXOLE
     Indication: PARKINSON^S DISEASE
     Route: 048
  2. DUODOPA [Suspect]
     Active Substance: CARBIDOPA\LEVODOPA
     Dosage: MORNING BOLUS 14 ML
     Route: 050
     Dates: start: 20190111, end: 20190114
  3. DUODOPA [Suspect]
     Active Substance: CARBIDOPA\LEVODOPA
     Indication: ON AND OFF PHENOMENON
     Route: 050
     Dates: start: 20170526
  4. LORAZEPAM. [Concomitant]
     Active Substance: LORAZEPAM
     Indication: SLEEP DISORDER
     Dosage: EVERY BEDTIME
     Route: 048
  5. LEVOCARB CR [Concomitant]
     Active Substance: CARBIDOPA\LEVODOPA
     Indication: GENERAL SYMPTOM
     Dosage: 200/50 MG EVERY BEDTIME
     Route: 048

REACTIONS (2)
  - Tension headache [Recovered/Resolved]
  - Cerebral atrophy [Not Recovered/Not Resolved]

NARRATIVE: CASE EVENT DATE: 2019
